FAERS Safety Report 6394857-5 (Version None)
Quarter: 2009Q4

REPORT INFORMATION
  Report Type: 
  Country: None (occurrence: None)
  Receive Date: 20091009
  Receipt Date: 20090929
  Transmission Date: 20100525
  Serious: Yes (Death, Life-Threatening, Hospitalization)
  Sender: FDA-Public Use
  Company Number: SE-JNJFOC-20091000137

PATIENT
  Age: 80 Year
  Sex: Female

DRUGS (1)
  1. REMICADE [Suspect]
     Indication: RHEUMATOID ARTHRITIS
     Route: 042

REACTIONS (5)
  - AORTIC STENOSIS [None]
  - ATRIAL FIBRILLATION [None]
  - DEHYDRATION [None]
  - PNEUMONIA [None]
  - PYOTHORAX [None]
